FAERS Safety Report 11198458 (Version 2)
Quarter: 2015Q3

REPORT INFORMATION
  Report Type: Spontaneous
  Country: US (occurrence: None)
  Receive Date: 20150616
  Receipt Date: 20150825
  Transmission Date: 20151125
  Serious: Yes (Other)
  Sender: FDA-Public Use
  Company Number: DEP_03014_2015

PATIENT
  Age: 71 Year
  Sex: Female

DRUGS (27)
  1. GABAPENTIN. [Concomitant]
     Active Substance: GABAPENTIN
  2. MAGNESIUM [Concomitant]
     Active Substance: MAGNESIUM
  3. OMEPRAZOLE MAGNESIUM. [Concomitant]
     Active Substance: OMEPRAZOLE MAGNESIUM
  4. VITAMIN D [Concomitant]
     Active Substance: CHOLECALCIFEROL
  5. PERCOCET [Concomitant]
     Active Substance: ACETAMINOPHEN\OXYCODONE HYDROCHLORIDE
  6. COZAAR [Concomitant]
     Active Substance: LOSARTAN POTASSIUM
  7. ZOCOR [Concomitant]
     Active Substance: SIMVASTATIN
  8. COLACE [Concomitant]
     Active Substance: DOCUSATE SODIUM
  9. ASPIRIN. [Concomitant]
     Active Substance: ASPIRIN
  10. SIMVASTATIN. [Concomitant]
     Active Substance: SIMVASTATIN
  11. AZO CRANBERRY [Concomitant]
  12. TRICOR [Concomitant]
     Active Substance: FENOFIBRATE
  13. ZIPSOR [Suspect]
     Active Substance: DICLOFENAC POTASSIUM
     Indication: ARTHRALGIA
     Dosage: DF
     Dates: start: 2013, end: 201501
  14. METFORMIN HCL [Concomitant]
     Active Substance: METFORMIN HYDROCHLORIDE
  15. CINNAMON. [Concomitant]
     Active Substance: CINNAMON
  16. NUTRA LIFE MILK THISTLE [Concomitant]
  17. XANAX [Concomitant]
     Active Substance: ALPRAZOLAM
  18. TAMOXIFEN [Concomitant]
     Active Substance: TAMOXIFEN
  19. DICLOFENAC POTASSIUM 50 MG [Suspect]
     Active Substance: DICLOFENAC POTASSIUM
     Indication: ARTHRALGIA
     Dosage: DF
     Dates: start: 2005, end: 201501
  20. FLEXERIL [Concomitant]
     Active Substance: CYCLOBENZAPRINE HYDROCHLORIDE
  21. HYDROCHLOROTHIAZIDE. [Concomitant]
     Active Substance: HYDROCHLOROTHIAZIDE
  22. GLIPIZIDE. [Concomitant]
     Active Substance: GLIPIZIDE
  23. KEFLEX [Concomitant]
     Active Substance: CEPHALEXIN
  24. ATARAX [Concomitant]
     Active Substance: HYDROXYZINE\HYDROXYZINE HYDROCHLORIDE
  25. REMERON [Concomitant]
     Active Substance: MIRTAZAPINE
  26. OXYCONTIN [Concomitant]
     Active Substance: OXYCODONE HYDROCHLORIDE
  27. MICROZIDE [Concomitant]
     Active Substance: HYDROCHLOROTHIAZIDE

REACTIONS (2)
  - Chronic kidney disease [None]
  - Interstitial granulomatous dermatitis [None]

NARRATIVE: CASE EVENT DATE: 201501
